FAERS Safety Report 11660851 (Version 1)
Quarter: 2015Q4

REPORT INFORMATION
  Report Type: Spontaneous
  Country: US (occurrence: US)
  Receive Date: 20151026
  Receipt Date: 20151026
  Transmission Date: 20160304
  Serious: No
  Sender: FDA-Public Use
  Company Number: US-MEDA-2011120092

PATIENT
  Age: 21 Year
  Sex: Female

DRUGS (11)
  1. DAILY MULTIVITAMIN [Concomitant]
     Active Substance: VITAMINS
  2. ZYRTEC [Concomitant]
     Active Substance: CETIRIZINE HYDROCHLORIDE
  3. PRIVIGEN [Suspect]
     Active Substance: HUMAN IMMUNOGLOBULIN G
     Indication: SELECTIVE IGG SUBCLASS DEFICIENCY
     Dates: start: 20111029
  4. BENADRYL [Concomitant]
     Active Substance: DIPHENHYDRAMINE HYDROCHLORIDE
  5. KARIVA [Concomitant]
     Active Substance: DESOGESTREL\ETHINYL ESTRADIOL
  6. SINGULAIR [Concomitant]
     Active Substance: MONTELUKAST SODIUM
  7. PRIVIGEN [Suspect]
     Active Substance: HUMAN IMMUNOGLOBULIN G
     Indication: SELECTIVE IGG SUBCLASS DEFICIENCY
     Dosage: OVER 4.5-5.0 HOURS PER PATIENT TOLERANCE
     Dates: start: 20110209
  8. MUCINEX [Concomitant]
     Active Substance: GUAIFENESIN
  9. NASONEX [Concomitant]
     Active Substance: MOMETASONE FUROATE
  10. MOTRIN [Concomitant]
     Active Substance: IBUPROFEN
  11. ASTEPRO [Suspect]
     Active Substance: AZELASTINE HYDROCHLORIDE
     Dates: start: 201110

REACTIONS (1)
  - Urticaria [Unknown]

NARRATIVE: CASE EVENT DATE: 201110
